FAERS Safety Report 6760427-X (Version None)
Quarter: 2010Q2

REPORT INFORMATION
  Report Type: 
  Country: None (occurrence: None)
  Receive Date: 20100608
  Receipt Date: 20100525
  Transmission Date: 20101027
  Serious: Yes (Other)
  Sender: FDA-Public Use
  Company Number: PHHY2010AT34493

PATIENT
  Age: 77 Year
  Sex: Male

DRUGS (9)
  1. LESCOL [Suspect]
  2. RASILEZ [Suspect]
     Dosage: 150 MG
     Dates: start: 20100201
  3. RASILEZ [Suspect]
     Dosage: 300 MG
     Dates: start: 20100201
  4. COZAAR [Concomitant]
  5. AMLODIPINE [Concomitant]
  6. FLUDEX [Concomitant]
  7. NOMEXOR [Concomitant]
  8. METFORMIN HCL [Concomitant]
  9. LIPCOR [Concomitant]

REACTIONS (1)
  - PROTEINURIA [None]
